FAERS Safety Report 6557690-7 (Version None)
Quarter: 2010Q1

REPORT INFORMATION
  Report Type: 
  Country: None (occurrence: None)
  Receive Date: 20100127
  Receipt Date: 20090903
  Transmission Date: 20100710
  Serious: No
  Sender: FDA-Public Use
  Company Number: 2009-00580

PATIENT
  Age: 72 Year
  Sex: Female
  Weight: 70.3075 kg

DRUGS (4)
  1. ZICAM NASAL PRODUCTS [Suspect]
     Dosage: 2-3 DOSES; 2 YEARS AGO, 2-3 DOSES
  2. PROPRANOLOL [Concomitant]
  3. SYNTHROID [Concomitant]
  4. FISH OIL [Concomitant]

REACTIONS (1)
  - ANOSMIA [None]
